FAERS Safety Report 5704409-5 (Version None)
Quarter: 2008Q2

REPORT INFORMATION
  Report Type: 
  Country: None (occurrence: None)
  Receive Date: 20080414
  Receipt Date: 20080408
  Transmission Date: 20081010
  Serious: Yes (Disabling)
  Sender: FDA-Public Use
  Company Number: B0514282A

PATIENT
  Age: 64 Year
  Sex: Female
  Weight: 75 kg

DRUGS (10)
  1. WELLBUTRIN [Suspect]
     Indication: DEPRESSION
     Dosage: 1TAB IN THE MORNING
     Route: 065
     Dates: start: 20080321, end: 20080324
  2. MEDROL [Concomitant]
     Indication: TEMPORAL ARTERITIS
     Dates: start: 20071101
  3. LORAZEPAM [Concomitant]
     Indication: SLEEP DISORDER
  4. LIVIAL [Concomitant]
     Indication: MENOPAUSE
  5. DAFLON [Concomitant]
  6. OMEPRAZOLE [Concomitant]
     Dates: start: 20071101
  7. ASAFLOW [Concomitant]
     Dates: start: 20071101
  8. TRAZOLAN [Concomitant]
     Indication: SLEEP DISORDER
     Dates: start: 20070404
  9. ZOCOR [Concomitant]
     Dates: start: 20080208
  10. CALCITE-D [Concomitant]
     Dates: start: 20071101

REACTIONS (5)
  - APATHY [None]
  - DISTURBANCE IN ATTENTION [None]
  - DIZZINESS [None]
  - DYSGEUSIA [None]
  - NAUSEA [None]
